FAERS Safety Report 7071263-1 (Version None)
Quarter: 2010Q4

REPORT INFORMATION
  Report Type: 
  Country: None (occurrence: None)
  Receive Date: 20101028
  Receipt Date: 20101028
  Transmission Date: 20110411
  Serious: Yes (Hospitalization)
  Sender: FDA-Public Use
  Company Number: None

PATIENT
  Age: 2 Year
  Sex: Female
  Weight: 9.0719 kg

DRUGS (1)
  1. HYLAND'S TEETHING TABLETS HYLAND'S [Suspect]
     Indication: TEETHING
     Dosage: 2-3 TABLETS 4 TIMES A DAY
     Dates: start: 20071001, end: 20080301

REACTIONS (5)
  - EAR INFECTION [None]
  - FEBRILE CONVULSION [None]
  - LETHARGY [None]
  - RESPIRATORY SYNCYTIAL VIRUS INFECTION [None]
  - SOMNOLENCE [None]
